FAERS Safety Report 19025935 (Version 1)
Quarter: 2021Q1

REPORT INFORMATION
  Report Type: Spontaneous
  Country: US (occurrence: US)
  Receive Date: 20210318
  Receipt Date: 20210318
  Transmission Date: 20210420
  Serious: Yes (Other)
  Sender: FDA-Public Use
  Company Number: US-GLAXOSMITHKLINE-US2021GSK049392

PATIENT
  Sex: Male

DRUGS (10)
  1. RANITIDINE. [Suspect]
     Active Substance: RANITIDINE
     Indication: GASTROOESOPHAGEAL REFLUX DISEASE
     Dosage: 75 MG, OTHER
     Route: 065
     Dates: start: 199711, end: 201306
  2. RANITIDINE. [Suspect]
     Active Substance: RANITIDINE
     Indication: GASTROOESOPHAGEAL REFLUX DISEASE
     Dosage: 75 MG, OTHER
     Route: 065
     Dates: start: 199711, end: 201306
  3. RANITIDINE HYDROCHLORIDE. [Suspect]
     Active Substance: RANITIDINE HYDROCHLORIDE
     Indication: GASTROOESOPHAGEAL REFLUX DISEASE
     Dosage: 75 MG, OTHER
     Route: 065
     Dates: start: 199711, end: 201306
  4. ZANTAC [Suspect]
     Active Substance: RANITIDINE HYDROCHLORIDE
     Indication: GASTROOESOPHAGEAL REFLUX DISEASE
     Dosage: 75 MG OVER THE COUNTER
     Route: 065
     Dates: start: 199611, end: 201306
  5. ZANTAC [Suspect]
     Active Substance: RANITIDINE HYDROCHLORIDE
     Dosage: 150 MG, QD
     Route: 065
     Dates: start: 199611, end: 201306
  6. RANITIDINE HYDROCHLORIDE. [Suspect]
     Active Substance: RANITIDINE HYDROCHLORIDE
     Dosage: 150 MG, OTHER
     Route: 065
     Dates: start: 199711, end: 201306
  7. ZANTAC [Suspect]
     Active Substance: RANITIDINE HYDROCHLORIDE
     Indication: GASTROOESOPHAGEAL REFLUX DISEASE
     Dosage: 75 MG OVER THE COUNTER
     Route: 065
     Dates: start: 199611, end: 201306
  8. RANITIDINE. [Suspect]
     Active Substance: RANITIDINE
     Dosage: 150 MG, OTHER
     Route: 065
     Dates: start: 199711, end: 201306
  9. ZANTAC [Suspect]
     Active Substance: RANITIDINE HYDROCHLORIDE
     Dosage: 150 MG, QD
     Route: 065
     Dates: start: 199611, end: 201306
  10. RANITIDINE. [Suspect]
     Active Substance: RANITIDINE
     Dosage: 150 MG, OTHER
     Route: 065
     Dates: start: 199711, end: 201306

REACTIONS (2)
  - Bladder cancer [Unknown]
  - Renal cancer [Unknown]
